FAERS Safety Report 19478483 (Version 4)
Quarter: 2021Q3

REPORT INFORMATION
  Report Type: Report from Study
  Country: CO (occurrence: CO)
  Receive Date: 20210630
  Receipt Date: 20210923
  Transmission Date: 20211014
  Serious: Yes (Other)
  Sender: FDA-Public Use
  Company Number: CO-TAKEDA-CO202012495

PATIENT
  Age: 39 Year
  Sex: Male
  Weight: 62 kg

DRUGS (4)
  1. HUMAN NORMAL IMMUNOGLOBULIN [Suspect]
     Active Substance: HUMAN IMMUNOGLOBULIN G
     Dosage: UNK
     Route: 042
     Dates: start: 20200331
  2. MYCOPHENOLATE MOFETIL. [Concomitant]
     Active Substance: MYCOPHENOLATE MOFETIL
  3. HUMAN NORMAL IMMUNOGLOBULIN [Suspect]
     Active Substance: HUMAN IMMUNOGLOBULIN G
     Dosage: 5 GRAM
     Route: 042
     Dates: start: 20100817
  4. HUMAN NORMAL IMMUNOGLOBULIN [Suspect]
     Active Substance: HUMAN IMMUNOGLOBULIN G
     Indication: PRIMARY IMMUNODEFICIENCY SYNDROME
     Dosage: 8 DOSAGE FORM
     Route: 042
     Dates: start: 20100817

REACTIONS (20)
  - Speech disorder [Not Recovered/Not Resolved]
  - Product availability issue [Not Recovered/Not Resolved]
  - Headache [Recovering/Resolving]
  - Weight increased [Unknown]
  - Discouragement [Recovering/Resolving]
  - Abdominal pain [Not Recovered/Not Resolved]
  - Fatigue [Recovering/Resolving]
  - Suspected COVID-19 [Recovering/Resolving]
  - Mouth injury [Not Recovered/Not Resolved]
  - Pyrexia [Not Recovered/Not Resolved]
  - Myalgia [Not Recovered/Not Resolved]
  - Asthenia [Recovering/Resolving]
  - Inappropriate schedule of product administration [Not Recovered/Not Resolved]
  - Ill-defined disorder [Not Recovered/Not Resolved]
  - Therapy interrupted [Recovering/Resolving]
  - Chills [Recovering/Resolving]
  - Weight decreased [Unknown]
  - Blood creatine phosphokinase increased [Not Recovered/Not Resolved]
  - General physical health deterioration [Unknown]
  - Somnolence [Not Recovered/Not Resolved]

NARRATIVE: CASE EVENT DATE: 20200331
